FAERS Safety Report 5404601-3 (Version None)
Quarter: 2007Q3

REPORT INFORMATION
  Report Type: 
  Country: None (occurrence: None)
  Receive Date: 20070713
  Receipt Date: 20070423
  Transmission Date: 20080115
  Serious: Yes (Hospitalization)
  Sender: FDA-Public Use
  Company Number: US-JNJFOC-20060204976

PATIENT
  Age: 43 Year
  Sex: Female
  Weight: 59.6934 kg

DRUGS (2)
  1. ORTHO EVRA [Suspect]
     Indication: CONTRACEPTION
     Dosage: TRANSDERMAL
     Route: 062
     Dates: start: 20031101, end: 20051026
  2. SULFASALAZINE [Concomitant]

REACTIONS (2)
  - DEEP VEIN THROMBOSIS [None]
  - URINARY TRACT INFECTION [None]
